FAERS Safety Report 9849201 (Version 1)
Quarter: 2014Q1

REPORT INFORMATION
  Report Type: Spontaneous
  Country: US (occurrence: US)
  Receive Date: 20140128
  Receipt Date: 20140128
  Transmission Date: 20141002
  Serious: No
  Sender: FDA-Public Use
  Company Number: US-ABBVIE-14P-163-1188629-00

PATIENT
  Age: 50 Year
  Sex: Female

DRUGS (5)
  1. LUPRON DEPOT [Suspect]
     Indication: BREAST CANCER
     Route: 030
     Dates: start: 201001, end: 201308
  2. LUPRON DEPOT [Suspect]
     Indication: UTERINE DISORDER
  3. FEMARA [Concomitant]
     Indication: BREAST CANCER
  4. LISINOPRIL [Concomitant]
     Indication: HYPERTENSION
  5. ATORVASTATIN [Concomitant]
     Indication: BLOOD CHOLESTEROL INCREASED

REACTIONS (4)
  - Cancer in remission [Not Recovered/Not Resolved]
  - Drug effect incomplete [Not Recovered/Not Resolved]
  - Therapeutic response unexpected [Not Recovered/Not Resolved]
  - Off label use [Not Recovered/Not Resolved]
